FAERS Safety Report 15330327 (Version 2)
Quarter: 2019Q4

REPORT INFORMATION
  Report Type: Report from Study
  Country: US (occurrence: US)
  Receive Date: 20180829
  Receipt Date: 20191010
  Transmission Date: 20200122
  Serious: Yes (Other)
  Sender: FDA-Public Use
  Company Number: US-SA-2018SA236756

PATIENT
  Age: 53 Year
  Sex: Female

DRUGS (1)
  1. TERIFLUNOMIDE. [Suspect]
     Active Substance: TERIFLUNOMIDE
     Indication: MULTIPLE SCLEROSIS
     Dosage: 14 MG, QD
     Route: 048
     Dates: start: 20180514

REACTIONS (5)
  - Depression [Unknown]
  - Depressed mood [Unknown]
  - Memory impairment [Unknown]
  - Decreased interest [Unknown]
  - Alopecia [Unknown]

NARRATIVE: CASE EVENT DATE: 2018
